FAERS Safety Report 10142357 (Version 2)
Quarter: 2014Q3

REPORT INFORMATION
  Report Type: Spontaneous
  Country: US (occurrence: US)
  Receive Date: 20140430
  Receipt Date: 20140827
  Transmission Date: 20150326
  Serious: No
  Sender: FDA-Public Use
  Company Number: US-009507513-1404USA008856

PATIENT
  Sex: Female

DRUGS (1)
  1. CLARITIN REDITABS [Suspect]
     Active Substance: LORATADINE
     Indication: PRODUCT USED FOR UNKNOWN INDICATION
     Dosage: HAS ONLY TAKEN ONE OF THE TABLETS
     Route: 048

REACTIONS (5)
  - Product label issue [Unknown]
  - Circumstance or information capable of leading to medication error [Unknown]
  - Somnolence [Unknown]
  - Product lot number issue [Unknown]
  - Drug ineffective [Unknown]
